FAERS Safety Report 7195734-2 (Version None)
Quarter: 2010Q4

REPORT INFORMATION
  Report Type: 
  Country: None (occurrence: None)
  Receive Date: 20101223
  Receipt Date: 20101007
  Transmission Date: 20110411
  Serious: No
  Sender: FDA-Public Use
  Company Number: US-AMGEN-KDL441581

PATIENT

DRUGS (7)
  1. ENBREL [Suspect]
     Indication: RHEUMATOID ARTHRITIS
     Dosage: 50 MG, QWK
     Route: 058
     Dates: start: 20100609
  2. METHOTREXATE [Concomitant]
     Indication: RHEUMATOID ARTHRITIS
     Dosage: 2.5 MG, UNK
     Route: 048
     Dates: start: 20091201
  3. FOLATE SODIUM [Concomitant]
     Indication: RHEUMATOID ARTHRITIS
     Dosage: 1 MG, QD
     Route: 048
     Dates: start: 20091201
  4. PREDNISONE [Concomitant]
     Indication: RHEUMATOID ARTHRITIS
     Dosage: 10 MG, TID
     Route: 048
  5. ERGOCALCIFEROL [Concomitant]
     Dosage: 1000 IU, QD
     Route: 048
     Dates: start: 20091001
  6. FOLIC ACID [Concomitant]
     Dosage: 1 MG, BID
     Route: 048
  7. CALCIUM CARBONATE [Concomitant]
     Dosage: UNK UNK, BID
     Route: 048

REACTIONS (8)
  - ARTHRALGIA [None]
  - DRY MOUTH [None]
  - FOOT DEFORMITY [None]
  - FURUNCLE [None]
  - INDURATION [None]
  - OSTEOARTHRITIS [None]
  - OTITIS MEDIA [None]
  - TENOSYNOVITIS [None]
